FAERS Safety Report 4269060-5 (Version None)
Quarter: 2004Q1

REPORT INFORMATION
  Report Type: 
  Country: None (occurrence: None)
  Receive Date: 20040112
  Receipt Date: 20040112
  Transmission Date: 20041129
  Serious: Yes (Other)
  Sender: FDA-Public Use
  Company Number: None

PATIENT
  Age: 32 Year
  Sex: Female
  Weight: 86.1834 kg

DRUGS (1)
  1. PAXIL [Suspect]
     Indication: DEPRESSION
     Dosage: 10 MG QD FOR A M ORAL
     Route: 048

REACTIONS (9)
  - ACTIVITIES OF DAILY LIVING IMPAIRED [None]
  - DIARRHOEA [None]
  - DISTURBANCE IN ATTENTION [None]
  - DIZZINESS [None]
  - IMPAIRED WORK ABILITY [None]
  - INFLUENZA LIKE ILLNESS [None]
  - IRRITABILITY [None]
  - PARAESTHESIA [None]
  - SOMNOLENCE [None]
